FAERS Safety Report 14911636 (Version 1)
Quarter: 2018Q2

REPORT INFORMATION
  Report Type: Spontaneous
  Country: US (occurrence: US)
  Receive Date: 20180518
  Receipt Date: 20180518
  Transmission Date: 20180711
  Serious: No
  Sender: FDA-Public Use
  Company Number: US-009507513-1805USA002762

PATIENT
  Age: 16 Year
  Sex: Female

DRUGS (1)
  1. NEXPLANON [Suspect]
     Active Substance: ETONOGESTREL
     Indication: CONTRACEPTION
     Dosage: 1 DEVICE (68 MG), EVERY 3 YEARS
     Route: 015
     Dates: start: 20170818, end: 201710

REACTIONS (2)
  - Mood altered [Unknown]
  - Product use issue [Unknown]

NARRATIVE: CASE EVENT DATE: 2017
